FAERS Safety Report 9742606 (Version 1)
Quarter: 2013Q4

REPORT INFORMATION
  Report Type: Spontaneous
  Country: US (occurrence: US)
  Receive Date: 20131210
  Receipt Date: 20131210
  Transmission Date: 20140711
  Serious: No
  Sender: FDA-Public Use
  Company Number: US-GILEAD-2009-0024656

PATIENT
  Age: 67 Year
  Sex: Male

DRUGS (14)
  1. LETAIRIS [Suspect]
     Indication: PULMONARY ARTERIAL HYPERTENSION
     Route: 048
     Dates: start: 20090922, end: 20091002
  2. ALBUTEROL [Concomitant]
  3. ADVAIR [Concomitant]
  4. LANTUS [Concomitant]
  5. SPIRIVA [Concomitant]
  6. COMBIVENT [Concomitant]
  7. PENTOXIFYLLINE [Concomitant]
  8. LISINOPRIL [Concomitant]
  9. METFORMIN [Concomitant]
  10. SIMVASTATIN [Concomitant]
  11. GLIPIZIDE [Concomitant]
  12. FUROSEMIDE [Concomitant]
  13. SPIRONOLACTONE [Concomitant]
  14. DIGOXIN [Concomitant]

REACTIONS (1)
  - Fluid retention [Recovered/Resolved]
